FAERS Safety Report 6062633-9 (Version None)
Quarter: 2009Q1

REPORT INFORMATION
  Report Type: 
  Country: None (occurrence: None)
  Receive Date: 20090203
  Receipt Date: 20090129
  Transmission Date: 20090719
  Serious: Yes (Hospitalization)
  Sender: FDA-Public Use
  Company Number: US-ASTRAZENECA-2009UW02724

PATIENT
  Age: 71 Year
  Sex: Female
  Weight: 63.5 kg

DRUGS (6)
  1. NEXIUM [Suspect]
     Route: 048
     Dates: start: 20010101
  2. LANTUS [Concomitant]
     Indication: DIABETES MELLITUS
     Dosage: 80UNITS AC HS
     Route: 058
     Dates: start: 20040101
  3. HUMULIN R [Concomitant]
     Indication: DIABETES MELLITUS
     Dosage: AS NEEDED
     Route: 058
     Dates: start: 20040101
  4. CALCIUM PLUS D [Concomitant]
     Route: 048
  5. DETROL LA [Concomitant]
     Indication: INCONTINENCE
     Dosage: DAILY
     Route: 048
  6. MIRAPEX [Concomitant]
     Indication: MUSCLE TWITCHING
     Route: 048
     Dates: start: 20080101

REACTIONS (4)
  - CEREBROVASCULAR ACCIDENT [None]
  - HIP FRACTURE [None]
  - MUSCLE TWITCHING [None]
  - URINARY TRACT INFECTION [None]
